FAERS Safety Report 13042597 (Version 2)
Quarter: 2016Q4

REPORT INFORMATION
  Report Type: Spontaneous
  Country: FR (occurrence: FR)
  Receive Date: 20161219
  Receipt Date: 20161226
  Transmission Date: 20170207
  Serious: Yes (Other)
  Sender: FDA-Public Use
  Company Number: FR-MYLANLABS-2016M1055802

PATIENT

DRUGS (1)
  1. CLARITHROMYCIN. [Suspect]
     Active Substance: CLARITHROMYCIN
     Indication: PNEUMONIA
     Dosage: 500 MG, BID

REACTIONS (5)
  - Iridocyclitis [Recovering/Resolving]
  - Lymphadenopathy [Recovering/Resolving]
  - Rash maculo-papular [Recovering/Resolving]
  - Arthralgia [Recovering/Resolving]
  - Hyperthermia [Recovering/Resolving]
